FAERS Safety Report 12265130 (Version 2)
Quarter: 2016Q2

REPORT INFORMATION
  Report Type: Spontaneous
  Country: JP (occurrence: JP)
  Receive Date: 20160413
  Receipt Date: 20160624
  Transmission Date: 20160815
  Serious: Yes (Death, Other)
  Sender: FDA-Public Use
  Company Number: JP-BAYER-2016-065537

PATIENT
  Age: 55 Year
  Sex: Male
  Weight: 52.2 kg

DRUGS (1)
  1. NEXAVAR [Suspect]
     Active Substance: SORAFENIB
     Indication: RENAL CELL CARCINOMA
     Dosage: 200 MG, QD
     Route: 048
     Dates: start: 20160317, end: 20160323

REACTIONS (2)
  - Lung disorder [Recovered/Resolved]
  - Renal cancer [Fatal]

NARRATIVE: CASE EVENT DATE: 20160323
